FAERS Safety Report 8478214-3 (Version None)
Quarter: 2012Q2

REPORT INFORMATION
  Report Type: 
  Country: None (occurrence: None)
  Receive Date: 20120629
  Receipt Date: 20120627
  Transmission Date: 20120825
  Serious: Yes (Death, Hospitalization, Other)
  Sender: FDA-Public Use
  Company Number: PHHY2012BR052370

PATIENT
  Sex: Male

DRUGS (4)
  1. HIDRION [Concomitant]
  2. RASILEZ [Suspect]
     Indication: HYPERTENSION
     Dosage: 0.5 DF, A DAY
     Route: 048
     Dates: start: 20120201
  3. METFORMIN HCL [Concomitant]
  4. CAPTOPRIL [Concomitant]

REACTIONS (9)
  - ABDOMINAL DISTENSION [None]
  - ACUTE RESPIRATORY FAILURE [None]
  - RENAL FAILURE [None]
  - CHRONIC OBSTRUCTIVE PULMONARY DISEASE [None]
  - SEPTIC SHOCK [None]
  - DIABETES MELLITUS [None]
  - WRONG TECHNIQUE IN DRUG USAGE PROCESS [None]
  - PNEUMONIA [None]
  - OEDEMA PERIPHERAL [None]
